FAERS Safety Report 12522718 (Version 1)
Quarter: 2016Q3

REPORT INFORMATION
  Report Type: Report from Study
  Country: US (occurrence: US)
  Receive Date: 20160701
  Receipt Date: 20160701
  Transmission Date: 20161109
  Serious: Yes (Other)
  Sender: FDA-Public Use
  Company Number: US-MYLANLABS-2016M1027020

PATIENT

DRUGS (4)
  1. IBRANCE [Suspect]
     Active Substance: PALBOCICLIB
     Indication: BREAST CANCER METASTATIC
     Dosage: 125 MG, QD
     Route: 048
     Dates: start: 20150323, end: 201504
  2. IBRANCE [Suspect]
     Active Substance: PALBOCICLIB
     Dosage: 75 MG, QD
     Route: 048
     Dates: start: 20150619
  3. LETROZOLE. [Suspect]
     Active Substance: LETROZOLE
     Indication: BREAST CANCER METASTATIC
     Dosage: UNK
     Dates: start: 20150413
  4. IBRANCE [Suspect]
     Active Substance: PALBOCICLIB
     Dosage: 100 MG, QD
     Route: 048
     Dates: start: 20150413, end: 201506

REACTIONS (10)
  - Depressed mood [Unknown]
  - Fatigue [Unknown]
  - Insomnia [Unknown]
  - Cystitis [Unknown]
  - Neutropenia [Recovered/Resolved]
  - Pain in extremity [None]
  - Anxiety [Unknown]
  - Nausea [Unknown]
  - Memory impairment [Unknown]
  - Hypoaesthesia [None]

NARRATIVE: CASE EVENT DATE: 20150413
